FAERS Safety Report 21164632 (Version 1)
Quarter: 2022Q3

REPORT INFORMATION
  Report Type: Spontaneous
  Country: CN (occurrence: CN)
  Receive Date: 20220803
  Receipt Date: 20220803
  Transmission Date: 20221027
  Serious: Yes (Hospitalization, Other)
  Sender: FDA-Public Use
  Company Number: None

PATIENT
  Age: 42 Year
  Sex: Female
  Weight: 48 kg

DRUGS (10)
  1. CYCLOPHOSPHAMIDE [Suspect]
     Active Substance: CYCLOPHOSPHAMIDE
     Indication: Diffuse large B-cell lymphoma stage IV
     Dosage: CYCLOPHOSPHAMIDE FOR INJECTION (1.1G) + 0.9% SODIUM CHLORIDE INJECTION (500ML), ONE-TIME
     Route: 041
     Dates: start: 20220627, end: 20220627
  2. SODIUM CHLORIDE [Suspect]
     Active Substance: SODIUM CHLORIDE
     Indication: Medication dilution
     Dosage: CYCLOPHOSPHAMIDE FOR INJECTION (1.1G) + 0.9% SODIUM CHLORIDE INJECTION (500ML), ONE-TIME
     Route: 041
     Dates: start: 20220627, end: 20220627
  3. SODIUM CHLORIDE [Suspect]
     Active Substance: SODIUM CHLORIDE
     Dosage: RITUXIMAB INJECTION (100MG) + 0.9% SODIUM CHLORIDE INJECTION (100ML), ONCE A DAY
     Route: 041
     Dates: start: 20220626, end: 20220626
  4. SODIUM CHLORIDE [Suspect]
     Active Substance: SODIUM CHLORIDE
     Dosage: RITUXIMAB INJECTION (500MG) + 0.9% SODIUM CHLORIDE INJECTION (500ML), ONCE A DAY
     Route: 041
     Dates: start: 20220626, end: 20220626
  5. SODIUM CHLORIDE [Suspect]
     Active Substance: SODIUM CHLORIDE
     Dosage: VINCRISTINE SULFATE FOR INJECTION (2MG) + 0.9% SODIUM CHLORIDE INJECTION (100ML), ONCE A DAY
     Route: 041
     Dates: start: 20220627, end: 20220627
  6. DEXTROSE MONOHYDRATE [Suspect]
     Active Substance: DEXTROSE MONOHYDRATE
     Indication: Medication dilution
     Dosage: PIRARUBICIN HYDROCHLORIDE (75MG) + 5% GLUCOSE INJECTION (250ML), ONE-TIME
     Route: 041
     Dates: start: 20220627, end: 20220627
  7. RITUXIMAB [Suspect]
     Active Substance: RITUXIMAB
     Indication: Diffuse large B-cell lymphoma stage IV
     Dosage: RITUXIMAB INJECTION (100MG) + 0.9% SODIUM CHLORIDE INJECTION (100ML), ONCE A DAY
     Route: 041
     Dates: start: 20220626, end: 20220626
  8. RITUXIMAB [Suspect]
     Active Substance: RITUXIMAB
     Dosage: RITUXIMAB INJECTION (500MG) + 0.9% SODIUM CHLORIDE INJECTION (500ML), ONCE A DAY
     Route: 041
     Dates: start: 20220626, end: 20220626
  9. PIRARUBICIN HYDROCHLORIDE [Suspect]
     Active Substance: PIRARUBICIN HYDROCHLORIDE
     Indication: Diffuse large B-cell lymphoma stage IV
     Dosage: PIRARUBICIN HYDROCHLORIDE (75MG) + 5% GLUCOSE INJECTION (250ML), ONE-TIME
     Route: 041
     Dates: start: 20220627, end: 20220627
  10. VINCRISTINE SULFATE [Suspect]
     Active Substance: VINCRISTINE SULFATE
     Indication: Diffuse large B-cell lymphoma stage IV
     Dosage: VINCRISTINE SULFATE FOR INJECTION (2MG) + 0.9% SODIUM CHLORIDE INJECTION (100ML), ONCE A DAY
     Route: 041
     Dates: start: 20220627, end: 20220627

REACTIONS (3)
  - White blood cell count decreased [Recovering/Resolving]
  - Neutrophil count decreased [Recovering/Resolving]
  - Myelosuppression [Recovered/Resolved]

NARRATIVE: CASE EVENT DATE: 20220706
